FAERS Safety Report 13180572 (Version 1)
Quarter: 2017Q1

REPORT INFORMATION
  Report Type: Report from Study
  Country: BR (occurrence: BR)
  Receive Date: 20170202
  Receipt Date: 20170202
  Transmission Date: 20170428
  Serious: Yes (Other)
  Sender: FDA-Public Use
  Company Number: PHHY2017BR012346

PATIENT
  Sex: Male

DRUGS (1)
  1. FORASEQ [Suspect]
     Active Substance: BUDESONIDE\FORMOTEROL FUMARATE
     Indication: CHRONIC OBSTRUCTIVE PULMONARY DISEASE
     Dosage: 1 DF (400 UG), TID
     Route: 055

REACTIONS (6)
  - Hypoxia [Unknown]
  - Infection [Unknown]
  - Dyspnoea [Unknown]
  - Emphysema [Unknown]
  - Aphasia [Unknown]
  - Chronic obstructive pulmonary disease [Unknown]
